FAERS Safety Report 14544431 (Version 1)
Quarter: 2018Q1

REPORT INFORMATION
  Report Type: Spontaneous
  Country: CO (occurrence: CO)
  Receive Date: 20180217
  Receipt Date: 20180217
  Transmission Date: 20180509
  Serious: Yes (Other)
  Sender: FDA-Public Use
  Company Number: CO-BIOMARINAP-CO-2018-117151

PATIENT
  Age: 7 Year
  Sex: Male
  Weight: 13 kg

DRUGS (3)
  1. VIMIZIM [Suspect]
     Active Substance: ELOSULFASE ALFA
     Indication: MUCOPOLYSACCHARIDOSIS IV
     Dosage: 25 MG, QW
     Route: 042
     Dates: start: 20171221
  2. LORATADINE. [Concomitant]
     Active Substance: LORATADINE
     Indication: PREMEDICATION
     Dosage: 5 ML, UNK
  3. ACETAMINOPHEN. [Concomitant]
     Active Substance: ACETAMINOPHEN
     Indication: PREMEDICATION
     Dosage: 6 ML, UNK

REACTIONS (7)
  - Respiratory distress [Recovered/Resolved]
  - Hyperhidrosis [Recovered/Resolved]
  - Headache [Recovered/Resolved]
  - Vomiting [Recovered/Resolved]
  - Oxygen saturation decreased [Recovered/Resolved]
  - Pallor [Recovered/Resolved]
  - Somnolence [Recovered/Resolved]

NARRATIVE: CASE EVENT DATE: 20180215
